FAERS Safety Report 16167648 (Version 1)
Quarter: 2019Q2

REPORT INFORMATION
  Report Type: Spontaneous
  Country: US (occurrence: US)
  Receive Date: 20190408
  Receipt Date: 20190408
  Transmission Date: 20190711
  Serious: No
  Sender: FDA-Public Use
  Company Number: US-AMGEN-USASP2019052022

PATIENT
  Sex: Female

DRUGS (1)
  1. PROLIA [Suspect]
     Active Substance: DENOSUMAB
     Indication: POSTMENOPAUSE
     Dosage: 60 MILLIGRAM, QMO
     Route: 030

REACTIONS (3)
  - Incorrect route of product administration [Unknown]
  - Pain in extremity [Unknown]
  - Off label use [Unknown]
